FAERS Safety Report 22264307 (Version 1)
Quarter: 2023Q2

REPORT INFORMATION
  Report Type: Spontaneous
  Country: US (occurrence: None)
  Receive Date: 20230427
  Receipt Date: 20230427
  Transmission Date: 20230721
  Serious: Yes (Death)
  Sender: FDA-Public Use
  Company Number: None

PATIENT
  Age: 15 Year
  Sex: Female
  Weight: 49.2 kg

DRUGS (4)
  1. ABATACEPT [Suspect]
     Active Substance: ABATACEPT
     Indication: Graft versus host disease
     Dates: start: 20221010, end: 20230310
  2. ECULIZUMAB [Suspect]
     Active Substance: ECULIZUMAB
  3. NARSOPLIMAB [Suspect]
     Active Substance: NARSOPLIMAB
  4. TOCILIZUMAB [Suspect]
     Active Substance: TOCILIZUMAB

REACTIONS (23)
  - Allogenic stem cell transplantation [None]
  - Congenital aplastic anaemia [None]
  - Oral herpes [None]
  - Human metapneumovirus test positive [None]
  - Rhinovirus infection [None]
  - Enterovirus infection [None]
  - Lower respiratory tract infection [None]
  - Acute respiratory failure [None]
  - Acute respiratory distress syndrome [None]
  - Pulmonary alveolar haemorrhage [None]
  - Platelet transfusion [None]
  - Transfusion [None]
  - Shock haemorrhagic [None]
  - Acute kidney injury [None]
  - Hyperglycaemia [None]
  - Bone marrow failure [None]
  - Gastrointestinal haemorrhage [None]
  - Multiple organ dysfunction syndrome [None]
  - Hypervolaemia [None]
  - Clotting factor transfusion [None]
  - Transplantation complication [None]
  - Thrombotic microangiopathy [None]
  - Drug dependence [None]

NARRATIVE: CASE EVENT DATE: 20230420
